FAERS Safety Report 21072590 (Version 1)
Quarter: 2022Q3

REPORT INFORMATION
  Report Type: Spontaneous
  Country: GB (occurrence: GB)
  Receive Date: 20220712
  Receipt Date: 20220712
  Transmission Date: 20221026
  Serious: Yes (Disabling, Other)
  Sender: FDA-Public Use
  Company Number: GB-SA-2019SA206485

PATIENT
  Age: 59 Year
  Sex: Female
  Weight: 76 kg

DRUGS (6)
  1. DILTIAZEM [Suspect]
     Active Substance: DILTIAZEM
     Indication: Microvascular coronary artery disease
     Route: 048
     Dates: start: 2004, end: 20190517
  2. DILTIAZEM [Suspect]
     Active Substance: DILTIAZEM
     Dosage: 1 MONTH 3 DAYS
     Route: 048
     Dates: start: 20190517, end: 20190619
  3. DILTIAZEM [Suspect]
     Active Substance: DILTIAZEM
     Dosage: 1 MONTH 3 DAYS
     Route: 048
     Dates: start: 20190619, end: 20190626
  4. METFORMIN HYDROCHLORIDE [Suspect]
     Active Substance: METFORMIN HYDROCHLORIDE
     Indication: Insulin resistance
     Route: 048
     Dates: start: 20190304, end: 20190619
  5. ATORVASTATIN [Suspect]
     Active Substance: ATORVASTATIN
     Indication: Product used for unknown indication
     Route: 048
     Dates: start: 20180320, end: 20190625
  6. INSULIN NOS [Concomitant]
     Active Substance: INSULIN NOS
     Indication: Product used for unknown indication

REACTIONS (33)
  - Dyspepsia [Unknown]
  - Asthenia [Not Recovered/Not Resolved]
  - Arthralgia [Unknown]
  - Dizziness [Not Recovered/Not Resolved]
  - Cough [Unknown]
  - Headache [Unknown]
  - Nausea [Unknown]
  - Insomnia [Unknown]
  - Insomnia [Unknown]
  - Neck pain [Unknown]
  - Blood glucose increased [Unknown]
  - Back pain [Unknown]
  - Abnormal loss of weight [Unknown]
  - Tremor [Unknown]
  - Confusional state [Unknown]
  - Bradycardia [Unknown]
  - Stomatitis [Unknown]
  - Restless legs syndrome [Unknown]
  - Feeling cold [Unknown]
  - Somnolence [Unknown]
  - Muscle spasms [Unknown]
  - Pollakiuria [Unknown]
  - Fatigue [Unknown]
  - Pruritus [Unknown]
  - Memory impairment [Unknown]
  - Hypotension [Not Recovered/Not Resolved]
  - Hypopnoea [Unknown]
  - Abdominal distension [Unknown]
  - Hepatic pain [Unknown]
  - Hypoaesthesia oral [Unknown]
  - Hypoaesthesia [Unknown]
  - Body temperature decreased [Unknown]
  - Labelled drug-drug interaction medication error [Unknown]

NARRATIVE: CASE EVENT DATE: 20190401
